FAERS Safety Report 18023337 (Version 1)
Quarter: 2020Q3

REPORT INFORMATION
  Report Type: Spontaneous
  Country: DK (occurrence: DK)
  Receive Date: 20200715
  Receipt Date: 20200715
  Transmission Date: 20201103
  Serious: Yes (Life-Threatening)
  Sender: FDA-Public Use
  Company Number: DK-ACCORD-190285

PATIENT
  Age: 72 Year
  Sex: Female
  Weight: 96 kg

DRUGS (15)
  1. AMITRIPTYLINE/AMITRIPTYLINE HYDROCHLORIDE/AMITRIPTYLINE PAMOATE/AMITRIPTYLINOXIDE [Interacting]
     Active Substance: AMITRIPTYLINE
     Indication: PAIN
     Dosage: STRENGTH: 10 MG
     Route: 048
     Dates: start: 2016
  2. MYSIMBA [Interacting]
     Active Substance: BUPROPION HYDROCHLORIDE\NALTREXONE HYDROCHLORIDE
     Indication: WEIGHT DECREASED
     Dosage: DOSE: CONSUMED ONLY ONE TABLET. STRENGTH: 8MG/90MG
     Route: 048
     Dates: start: 20200624, end: 20200624
  3. PROMETHAZINE [Concomitant]
     Active Substance: PROMETHAZINE HYDROCHLORIDE
     Indication: INSOMNIA
     Dosage: STRENGTH: 25 MG
     Route: 048
     Dates: start: 2018
  4. PAMOL [Concomitant]
     Active Substance: ACETAMINOPHEN
     Indication: PAIN
     Dosage: STRENGTH: 500 MG
     Route: 048
     Dates: start: 2018
  5. ESTROFEM [Concomitant]
     Indication: HORMONE THERAPY
     Dosage: STRENGTH: 2 MG
     Route: 048
     Dates: start: 2017
  6. METHADONE DAK [Interacting]
     Active Substance: METHADONE HYDROCHLORIDE
     Indication: PAIN
     Dosage: STRENGTH: 5 MG
     Route: 048
     Dates: start: 2015
  7. SERTRALIN ACCORD [Suspect]
     Active Substance: SERTRALINE HYDROCHLORIDE
     Indication: MENTAL DISORDER
     Dosage: STRENGTH: 50 MG
     Route: 048
     Dates: start: 2017
  8. TOILAX [Concomitant]
     Active Substance: BISACODYL
     Indication: CONSTIPATION
     Dosage: STRENGTH: 5 MG
     Route: 048
     Dates: start: 2016
  9. GABAPENTIN. [Concomitant]
     Active Substance: GABAPENTIN
     Indication: NEURALGIA
     Dosage: STRENGTH: 400 MG
     Route: 048
     Dates: start: 2018
  10. ELTROXIN [Concomitant]
     Active Substance: LEVOTHYROXINE
     Indication: MYXOEDEMA
     Dosage: STRENGTH: 50 MICROGRAM
     Route: 048
     Dates: start: 2015
  11. BENDROZA [Concomitant]
     Active Substance: BENDROFLUMETHIAZIDE\POTASSIUM CHLORIDE
     Indication: HYPERTENSION
     Dosage: STRENGTH: 1,25+573 MG
     Route: 048
  12. PREDNISOLONE DLF [Concomitant]
     Indication: ADRENOCORTICAL STEROID THERAPY
     Dosage: DOSE: 2,5 MG DAILY OR AS NEEDED. STRENGTH: 2,5 MG
     Route: 048
     Dates: start: 2015
  13. AMLODIPIN SANDOZ [Concomitant]
     Indication: HYPERTENSION
     Dosage: STRENGTH: 5 MG
     Route: 048
     Dates: start: 2016
  14. PANTOPRAZOLE [Concomitant]
     Active Substance: PANTOPRAZOLE
     Indication: PROPHYLAXIS AGAINST GASTROINTESTINAL ULCER
     Dosage: STRENGTH: 40 MG
     Route: 048
     Dates: start: 2010
  15. KALEORID [Concomitant]
     Active Substance: POTASSIUM CHLORIDE
     Indication: MINERAL SUPPLEMENTATION
     Dosage: STRENGTH: 750 MG
     Route: 048
     Dates: start: 2014

REACTIONS (13)
  - Memory impairment [Unknown]
  - Feeling hot [Recovered/Resolved]
  - Serotonin syndrome [Recovering/Resolving]
  - Gait disturbance [Unknown]
  - Drug interaction [Unknown]
  - Cyanosis [Recovered/Resolved]
  - Seizure [Recovered/Resolved]
  - Speech disorder [Unknown]
  - Cardiovascular insufficiency [Recovering/Resolving]
  - Blood pressure increased [Recovering/Resolving]
  - Product prescribing issue [Unknown]
  - Heart rate increased [Recovering/Resolving]
  - Drug dependence [Recovering/Resolving]

NARRATIVE: CASE EVENT DATE: 202006
